FAERS Safety Report 10775775 (Version 1)
Quarter: 2015Q1

REPORT INFORMATION
  Report Type: Spontaneous
  Country: US (occurrence: US)
  Receive Date: 20150209
  Receipt Date: 20150209
  Transmission Date: 20150721
  Serious: Yes (Other)
  Sender: FDA-Public Use
  Company Number: US-BAYER-2015-015616

PATIENT
  Age: 15 Year
  Sex: Male

DRUGS (1)
  1. CIPRO [Suspect]
     Active Substance: CIPROFLOXACIN HYDROCHLORIDE
     Indication: PULMONARY FUNCTION TEST ABNORMAL
     Dosage: UNK

REACTIONS (2)
  - Pulmonary function test abnormal [None]
  - Product use issue [None]

NARRATIVE: CASE EVENT DATE: 2014
